FAERS Safety Report 6379742-7 (Version None)
Quarter: 2009Q3

REPORT INFORMATION
  Report Type: 
  Country: None (occurrence: None)
  Receive Date: 20090928
  Receipt Date: 20090921
  Transmission Date: 20100115
  Serious: Yes (Death, Hospitalization)
  Sender: FDA-Public Use
  Company Number: JP-SANOFI-SYNTHELABO-A01200814595

PATIENT
  Sex: Male

DRUGS (7)
  1. DECADRON [Concomitant]
     Dates: start: 20071213, end: 20080724
  2. SEROTONE [Concomitant]
     Dates: start: 20071213, end: 20080724
  3. CAMPTOSAR [Concomitant]
     Dates: start: 20080124, end: 20080724
  4. LEVOFOLINATE [Concomitant]
     Dates: start: 20071213, end: 20080724
  5. FLUOROURACIL [Concomitant]
     Dates: start: 20071213, end: 20080724
  6. AVASTIN [Suspect]
     Indication: RECTAL CANCER RECURRENT
     Dosage: 390 MG
     Route: 041
     Dates: start: 20080724, end: 20080724
  7. ELPLAT [Suspect]
     Indication: RECTAL CANCER RECURRENT
     Dosage: 150 MG
     Route: 041
     Dates: start: 20071213, end: 20071227

REACTIONS (4)
  - CACHEXIA [None]
  - DEEP VEIN THROMBOSIS [None]
  - HYPERSENSITIVITY [None]
  - PULMONARY EMBOLISM [None]
